FAERS Safety Report 5757340-3 (Version None)
Quarter: 2008Q2

REPORT INFORMATION
  Report Type: 
  Country: None (occurrence: None)
  Receive Date: 20080528
  Receipt Date: 20080509
  Transmission Date: 20081010
  Serious: Yes (Death, Hospitalization)
  Sender: FDA-Public Use
  Company Number: 2008AL004428

PATIENT
  Age: 72 Year
  Sex: Male

DRUGS (10)
  1. DIGOXIN [Suspect]
     Indication: CARDIAC FAILURE CONGESTIVE
     Dosage: PO
     Route: 048
     Dates: end: 20080304
  2. NITROGLYCERIN [Concomitant]
  3. LASIX [Concomitant]
  4. LIPITOR [Concomitant]
  5. COREG [Concomitant]
  6. IMDUR [Concomitant]
  7. COUMADIN [Concomitant]
  8. K+10 [Concomitant]
  9. ALLOPURINOL [Concomitant]
  10. ALDACTONE [Concomitant]

REACTIONS (4)
  - ANAESTHETIC COMPLICATION [None]
  - CHEST PAIN [None]
  - DYSPNOEA [None]
  - RENAL FAILURE [None]
